FAERS Safety Report 8369014-3 (Version None)
Quarter: 2012Q2

REPORT INFORMATION
  Report Type: 
  Country: None (occurrence: None)
  Receive Date: 20120516
  Receipt Date: 20120503
  Transmission Date: 20120825
  Serious: Yes (Other)
  Sender: FDA-Public Use
  Company Number: 1245920

PATIENT
  Age: 66 Year
  Sex: Male
  Weight: 35.6527 kg

DRUGS (4)
  1. LEUCOVORIN CALCIUM [Suspect]
     Indication: PRODUCT USED FOR UNKNOWN INDICATION
     Dosage: UNKNOWN,
  2. IRINOTECAN HYDROCHLORIDE [Suspect]
     Indication: TERMINAL STATE
     Dosage: 345 (UNIT NOT REPROTED) TWICE WEEKLY
     Dates: start: 20111118, end: 20120313
  3. FLUOROURACIL [Suspect]
     Indication: TERMINAL STATE
     Dosage: 600 AND 3400 (UNIT NOT REPORTED) TWICE WEEKLY
     Dates: start: 20111118, end: 20120313
  4. AVASTIN [Suspect]
     Indication: COLORECTAL CANCER
     Dosage: 800 (UNIT NOT PROVIDED) TWICE WEEKLY
     Dates: start: 20111118, end: 20120313

REACTIONS (5)
  - ANGIOEDEMA [None]
  - INTESTINAL MUCOSAL HYPERTROPHY [None]
  - CAECITIS [None]
  - INTESTINAL DILATATION [None]
  - GASTROINTESTINAL OEDEMA [None]
